FAERS Safety Report 9066831 (Version 1)
Quarter: 2013Q1

REPORT INFORMATION
  Report Type: Report from Study
  Country: HU (occurrence: HU)
  Receive Date: 20130214
  Receipt Date: 20130214
  Transmission Date: 20140127
  Serious: Yes (Hospitalization)
  Sender: FDA-Public Use
  Company Number: HU-GLAXOSMITHKLINE-B0867069A

PATIENT
  Age: 57 None
  Sex: Male

DRUGS (7)
  1. SERETIDE DISKUS [Suspect]
     Indication: CHRONIC OBSTRUCTIVE PULMONARY DISEASE
     Route: 055
     Dates: start: 201211
  2. CLOPIDOGREL BISULPHATE [Concomitant]
  3. MILURIT [Concomitant]
     Indication: ARTHRITIS
  4. NEBIVOLOL [Concomitant]
  5. SPIRIVA [Concomitant]
  6. ATIMOS [Concomitant]
  7. MICONAZOLE [Concomitant]

REACTIONS (4)
  - Thrombosis [Recovered/Resolved]
  - Pharyngitis [Recovered/Resolved]
  - Gingivitis [Recovered/Resolved]
  - Tooth extraction [Recovered/Resolved]
